FAERS Safety Report 6032028-2 (Version None)
Quarter: 2009Q1

REPORT INFORMATION
  Report Type: 
  Country: None (occurrence: None)
  Receive Date: 20090108
  Receipt Date: 20090105
  Transmission Date: 20090719
  Serious: Yes (Hospitalization)
  Sender: FDA-Public Use
  Company Number: PHHY2009GB00681

PATIENT
  Age: 77 Year
  Sex: Female

DRUGS (13)
  1. ZOLEDRONIC ACID [Suspect]
     Indication: OSTEOPOROSIS
     Dosage: 5 MG, UNK
     Dates: start: 20081212
  2. SYMBIOZA [Concomitant]
  3. ADCAL-D3 [Concomitant]
     Dosage: 2 DF, UNK
     Route: 048
  4. ASPIRIN [Concomitant]
     Dosage: 75 MG, UNK
     Route: 048
  5. BETAHISTINE [Concomitant]
     Dosage: 8 MG, UNK
     Route: 048
  6. CITALOPRAM HYDROBROMIDE [Concomitant]
     Dosage: 20 MG, UNK
     Route: 048
  7. FOLIC ACID [Concomitant]
     Dosage: 5 MG, UNK
     Route: 048
  8. FUROSEMIDE [Concomitant]
     Dosage: 40 MG, UNK
     Route: 048
  9. LISINOPRIL [Concomitant]
     Dosage: 5 MG, UNK
  10. OMEPRAZOLE [Concomitant]
     Dosage: 10 MG, UNK
  11. SYMBICORT [Concomitant]
  12. TIOTROPIUM BROMIDE [Concomitant]
  13. ZIDOVUDINE [Concomitant]
     Dosage: 5 MG, UNK
     Route: 048

REACTIONS (3)
  - DYSPNOEA [None]
  - GENERAL PHYSICAL CONDITION ABNORMAL [None]
  - RESPIRATORY FAILURE [None]
